FAERS Safety Report 5245782-4 (Version None)
Quarter: 2007Q1

REPORT INFORMATION
  Report Type: 
  Country: None (occurrence: None)
  Receive Date: 20070216
  Receipt Date: 20070201
  Transmission Date: 20070707
  Serious: Yes (Other)
  Sender: FDA-Public Use
  Company Number: 010543

PATIENT
  Age: 23 Year
  Sex: Female
  Weight: 54.4 kg

DRUGS (1)
  1. CLARAVIS [Suspect]
     Indication: ACNE
     Dosage: ORAL
     Route: 048
     Dates: start: 20061106, end: 20061204

REACTIONS (2)
  - ERYTHEMA NODOSUM [None]
  - RASH [None]
